FAERS Safety Report 20159220 (Version 1)
Quarter: 2021Q4

REPORT INFORMATION
  Report Type: Spontaneous
  Country: US (occurrence: US)
  Receive Date: 20211208
  Receipt Date: 20211208
  Transmission Date: 20220303
  Serious: Yes (Hospitalization, Other)
  Sender: FDA-Public Use
  Company Number: US-009507513-2112USA001623

PATIENT
  Age: 74 Year
  Sex: Male

DRUGS (2)
  1. KEYTRUDA [Suspect]
     Active Substance: PEMBROLIZUMAB
     Indication: Lung carcinoma cell type unspecified stage IV
  2. PEMETREXED [Concomitant]
     Active Substance: PEMETREXED
     Indication: Lung carcinoma cell type unspecified stage IV

REACTIONS (1)
  - Immune-mediated enterocolitis [Recovered/Resolved]
